FAERS Safety Report 4733134-2 (Version None)
Quarter: 2005Q3

REPORT INFORMATION
  Report Type: 
  Country: None (occurrence: None)
  Receive Date: 20050729
  Receipt Date: 20050718
  Transmission Date: 20060218
  Serious: Yes (Death)
  Sender: FDA-Public Use
  Company Number: 11852

PATIENT
  Sex: Female

DRUGS (6)
  1. PACLITAXEL [Suspect]
     Indication: OVARIAN CANCER
     Dosage: 80 MG/M2 PER_CYCLE, IV
     Route: 042
  2. CISPLATIN [Suspect]
     Indication: OVARIAN CANCER
     Dosage: 70 MG/M2 PER_CYCLE, IV
     Route: 042
  3. GEMCITABINE [Suspect]
     Indication: OVARIAN CANCER
     Dosage: 1000 MG/M2, IV
     Route: 042
  4. PREDNISOLONE [Concomitant]
  5. RANITIDINE [Concomitant]
  6. PHENIRAMINE MALEATE [Concomitant]

REACTIONS (2)
  - DRUG TOXICITY [None]
  - NEUTROPENIC SEPSIS [None]
